FAERS Safety Report 8150883 (Version 4)
Quarter: 2013Q2

REPORT INFORMATION
  Report Type: Spontaneous
  Country: US (occurrence: US)
  Receive Date: 20110922
  Receipt Date: 20130506
  Transmission Date: 20140414
  Serious: No
  Sender: FDA-Public Use
  Company Number: US-ASTRAZENECA-2011SE15928

PATIENT
  Age: 38 Year
  Sex: Male

DRUGS (1)
  1. SEROQUEL [Suspect]
     Route: 048

REACTIONS (7)
  - Road traffic accident [Unknown]
  - Adverse event [Unknown]
  - Influenza [Unknown]
  - Abnormal behaviour [Unknown]
  - Mental disorder [Unknown]
  - Malaise [Unknown]
  - Drug dose omission [Unknown]
